FAERS Safety Report 23208139 (Version 4)
Quarter: 2024Q1

REPORT INFORMATION
  Report Type: Report from Study
  Country: US (occurrence: US)
  Receive Date: 20231121
  Receipt Date: 20240331
  Transmission Date: 20240409
  Serious: Yes (Other)
  Sender: FDA-Public Use
  Company Number: US-002147023-NVSC2023US242575

PATIENT
  Age: 48 Year
  Sex: Female

DRUGS (2)
  1. KESIMPTA [Suspect]
     Active Substance: OFATUMUMAB
     Indication: Product used for unknown indication
     Dosage: UNK
     Route: 065
     Dates: start: 20230929
  2. INSULIN NOS [Concomitant]
     Active Substance: INSULIN NOS
     Indication: Diabetes mellitus
     Dosage: UNK
     Route: 065

REACTIONS (22)
  - Cerebrovascular accident [Unknown]
  - Feeling abnormal [Unknown]
  - Depression [Unknown]
  - Anxiety [Unknown]
  - Mental fatigue [Unknown]
  - Asthenia [Unknown]
  - Hyperacusis [Unknown]
  - Photophobia [Unknown]
  - Energy increased [Unknown]
  - Abdominal distension [Unknown]
  - Neck pain [Unknown]
  - Apathy [Unknown]
  - Blood glucose abnormal [Unknown]
  - Pain [Unknown]
  - Fatigue [Unknown]
  - Balance disorder [Unknown]
  - Insomnia [Unknown]
  - Sluggishness [Unknown]
  - Headache [Unknown]
  - Upper respiratory tract infection [Unknown]
  - Chest pain [Unknown]
  - Memory impairment [Unknown]

NARRATIVE: CASE EVENT DATE: 20231106
